FAERS Safety Report 4325395-9 (Version None)
Quarter: 2004Q1

REPORT INFORMATION
  Report Type: 
  Country: None (occurrence: None)
  Receive Date: 20040324
  Receipt Date: 20040310
  Transmission Date: 20041129
  Serious: Yes (Death, Hospitalization)
  Sender: FDA-Public Use
  Company Number: 04P-144-0252243-00

PATIENT
  Age: 35 Year
  Sex: Male

DRUGS (6)
  1. KALETRA [Suspect]
     Indication: HIV INFECTION
     Dosage: 3 CAPSULE, 2 IN 1 D, PER ORAL
     Route: 048
     Dates: start: 20020124, end: 20020306
  2. ZIDOVUDINE [Concomitant]
  3. LAMIVUDINE [Concomitant]
  4. FOLIC ACID [Concomitant]
  5. SPIRONOLACTONE [Concomitant]
  6. LACTITOL [Concomitant]

REACTIONS (6)
  - ENCEPHALOPATHY [None]
  - HEPATIC CIRRHOSIS [None]
  - INFECTION [None]
  - LYMPHADENOPATHY [None]
  - NON-HODGKIN'S LYMPHOMA [None]
  - VOMITING [None]
